FAERS Safety Report 14379191 (Version 2)
Quarter: 2018Q1

REPORT INFORMATION
  Report Type: Spontaneous
  Country: US (occurrence: US)
  Receive Date: 20180112
  Receipt Date: 20180202
  Transmission Date: 20180509
  Serious: Yes (Hospitalization)
  Sender: FDA-Public Use
  Company Number: US-NOVEN PHARMACEUTICALS, INC.-US2018000016

PATIENT

DRUGS (2)
  1. COMBIPATCH [Suspect]
     Active Substance: ESTRADIOL\NORETHINDRONE ACETATE
     Indication: NIGHT SWEATS
     Dosage: 50/140 MG, UNKNOWN
     Route: 062
     Dates: start: 201702, end: 201707
  2. COMBIPATCH [Suspect]
     Active Substance: ESTRADIOL\NORETHINDRONE ACETATE
     Indication: IRRITABILITY
     Dosage: 50/140 MG, UNKNOWN
     Route: 062
     Dates: start: 201712

REACTIONS (10)
  - Drug ineffective [Recovered/Resolved]
  - Gallbladder operation [Recovered/Resolved]
  - Product quality issue [Recovered/Resolved]
  - Product adhesion issue [Recovered/Resolved]
  - Dyspepsia [Recovered/Resolved]
  - Therapy cessation [Recovered/Resolved]
  - Dehydration [Recovered/Resolved]
  - Product storage error [Recovered/Resolved]
  - Retching [Recovered/Resolved]
  - Off label use [Not Recovered/Not Resolved]

NARRATIVE: CASE EVENT DATE: 2017
